FAERS Safety Report 24025516 (Version 1)
Quarter: 2024Q2

REPORT INFORMATION
  Report Type: Spontaneous
  Country: IL (occurrence: IL)
  Receive Date: 20240628
  Receipt Date: 20240628
  Transmission Date: 20240716
  Serious: No
  Sender: FDA-Public Use
  Company Number: IL-ROCHE-3446254

PATIENT
  Sex: Female

DRUGS (1)
  1. ALECENSA [Suspect]
     Active Substance: ALECTINIB HYDROCHLORIDE
     Indication: Lung neoplasm malignant
     Route: 065

REACTIONS (5)
  - Constipation [Unknown]
  - Fatigue [Unknown]
  - Rash [Recovered/Resolved]
  - Cheilitis [Recovered/Resolved]
  - Tongue eruption [Recovered/Resolved]
